FAERS Safety Report 21758219 (Version 1)
Quarter: 2022Q4

REPORT INFORMATION
  Report Type: Spontaneous
  Country: US (occurrence: US)
  Receive Date: 20221221
  Receipt Date: 20221221
  Transmission Date: 20230112
  Serious: No
  Sender: FDA-Public Use
  Company Number: US-CELLTRION INC.-2022US002964

PATIENT

DRUGS (2)
  1. TRUXIMA [Suspect]
     Active Substance: RITUXIMAB-ABBS
     Indication: Thrombocytopenic purpura
     Dosage: 683 MG, WEEKLY (THERAPY GIVEN: 17/2022)
  2. TRUXIMA [Suspect]
     Active Substance: RITUXIMAB-ABBS
     Dosage: 683 MG, WEEKLY
     Dates: start: 20220124

REACTIONS (2)
  - Thrombocytopenic purpura [Unknown]
  - Off label use [Unknown]
